FAERS Safety Report 9619564 (Version 1)
Quarter: 2013Q4

REPORT INFORMATION
  Report Type: Spontaneous
  Country: US (occurrence: US)
  Receive Date: 20131014
  Receipt Date: 20131014
  Transmission Date: 20140711
  Serious: Yes (Other)
  Sender: FDA-Public Use
  Company Number: US-PFIZER INC-2013286644

PATIENT
  Sex: Female

DRUGS (2)
  1. ROBITUSSIN DAYTIME COLD AND FLU [Suspect]
     Indication: COUGH
     Dosage: UNK
     Dates: start: 201309, end: 2013
  2. CALCIUM [Concomitant]
     Dosage: UNK, 1X/DAY

REACTIONS (2)
  - Choking [Unknown]
  - Retching [Unknown]
